FAERS Safety Report 23471502 (Version 2)
Quarter: 2024Q1

REPORT INFORMATION
  Report Type: Spontaneous
  Country: PT (occurrence: PT)
  Receive Date: 20240202
  Receipt Date: 20240229
  Transmission Date: 20240410
  Serious: Yes (Disabling)
  Sender: FDA-Public Use
  Company Number: None

PATIENT
  Age: 3 Year
  Sex: Male
  Weight: 15.5 kg

DRUGS (2)
  1. SINGULAIR [Suspect]
     Active Substance: MONTELUKAST SODIUM
     Indication: Asthma
     Dosage: 1 TABLET BEFORE BEDTIME
     Route: 048
     Dates: start: 20240118, end: 20240120
  2. FLIXOTAIDE [FLUTICASONE PROPIONATE] [Concomitant]
     Indication: Asthma
     Dosage: UNK

REACTIONS (7)
  - Apathy [Recovered/Resolved]
  - Depressed mood [Recovered/Resolved]
  - Impatience [Recovered/Resolved]
  - Sudden onset of sleep [Recovered/Resolved]
  - Fatigue [Recovered/Resolved]
  - Headache [Recovered/Resolved]
  - Aggression [Recovered/Resolved]

NARRATIVE: CASE EVENT DATE: 20240119
